FAERS Safety Report 8399500-1 (Version None)
Quarter: 2012Q2

REPORT INFORMATION
  Report Type: 
  Country: None (occurrence: None)
  Receive Date: 20120531
  Receipt Date: 20120522
  Transmission Date: 20120825
  Serious: Yes (Other)
  Sender: FDA-Public Use
  Company Number: US-ASTRAZENECA-2012SE32812

PATIENT
  Age: 67 Year
  Sex: Male
  Weight: 83.9 kg

DRUGS (16)
  1. FLOMAX [Concomitant]
  2. SYMBICORT [Concomitant]
  3. POTASSIUM CHLORIDE [Concomitant]
  4. VITAMIN D [Concomitant]
  5. ACYCLOVIR [Concomitant]
  6. HYDROCORTISONE [Concomitant]
  7. BACTRIM [Concomitant]
  8. ENTOCORT EC [Suspect]
     Indication: BONE MARROW TRANSPLANT
     Route: 048
  9. RAPAMUNE [Suspect]
     Indication: BONE MARROW TRANSPLANT
     Route: 048
     Dates: start: 20120101
  10. CALCIUM CARBONATE [Concomitant]
  11. MAGNESIUM PLUS PROTEIN [Concomitant]
  12. PREDNISONE TAB [Concomitant]
  13. VORICONAZOLE [Concomitant]
  14. TACROLIMUS [Suspect]
     Indication: BONE MARROW TRANSPLANT
     Route: 065
     Dates: start: 20081001, end: 20120101
  15. DEXAMETHASONE [Concomitant]
  16. URSODIOL [Concomitant]

REACTIONS (4)
  - TRANSPLANT FAILURE [None]
  - GRAFT VERSUS HOST DISEASE [None]
  - GRAFT COMPLICATION [None]
  - MYELODYSPLASTIC SYNDROME [None]
